FAERS Safety Report 10153908 (Version 1)
Quarter: 2014Q2

REPORT INFORMATION
  Report Type: Report from Study
  Country: US (occurrence: None)
  Receive Date: 20140502
  Receipt Date: 20140502
  Transmission Date: 20141212
  Serious: Yes (Hospitalization)
  Sender: FDA-Public Use
  Company Number: 153038

PATIENT
  Sex: Female
  Weight: 94 kg

DRUGS (14)
  1. CYTARABINE [Suspect]
     Indication: ACUTE MYELOID LEUKAEMIA
     Dosage: 1500MG/M2 IV EVERY 12 HRS ON DAYS 1-6 X 2 CYCLES (TOTAL 35460MG); INDUCTION COURSE TTL ADMINISTERED = 1414MG TOTAL
     Dates: start: 20131221, end: 20131227
  2. ACYCLOVIR [Concomitant]
  3. ARIMIDEX [Concomitant]
  4. CIPRO [Concomitant]
  5. CYMBALTA [Concomitant]
  6. HUMALOG INSULIN [Concomitant]
  7. LANTUS [Concomitant]
  8. METFORMIN [Concomitant]
  9. NORVASC [Concomitant]
  10. TOPROL XL [Concomitant]
  11. VOLTAREN [Concomitant]
  12. VYTORIN [Concomitant]
  13. ZOSYN [Concomitant]
  14. VANCOMYCIN [Concomitant]

REACTIONS (5)
  - Sinus tachycardia [None]
  - Febrile neutropenia [None]
  - Lung consolidation [None]
  - Hypertension [None]
  - Dizziness [None]
